FAERS Safety Report 16740343 (Version 1)
Quarter: 2019Q3

REPORT INFORMATION
  Report Type: Spontaneous
  Country: US (occurrence: US)
  Receive Date: 20190826
  Receipt Date: 20190826
  Transmission Date: 20191005
  Serious: No
  Sender: FDA-Public Use
  Company Number: US-PFIZER INC-2019359544

PATIENT
  Age: 89 Year
  Sex: Male
  Weight: 77.11 kg

DRUGS (1)
  1. ADVIL LIQUI-GELS [Suspect]
     Active Substance: IBUPROFEN
     Indication: PAIN
     Dosage: 800 MG, DAILY (TWO 200MG CAPSULES, BV MOUTH, IN THE MORNING, AND TWO 200MG IN THE EVENING)

REACTIONS (3)
  - Loss of personal independence in daily activities [Unknown]
  - Mental disorder [Unknown]
  - Infection [Unknown]
